FAERS Safety Report 11918991 (Version 2)
Quarter: 2016Q3

REPORT INFORMATION
  Report Type: Spontaneous
  Country: US (occurrence: US)
  Receive Date: 20160115
  Receipt Date: 20160907
  Transmission Date: 20161109
  Serious: Yes (Hospitalization)
  Sender: FDA-Public Use
  Company Number: US-JNJFOC-20151210820

PATIENT
  Age: 50 Year
  Sex: Female
  Weight: 103.87 kg

DRUGS (25)
  1. LEVAQUIN [Suspect]
     Active Substance: LEVOFLOXACIN
     Indication: ASTHMA
     Route: 048
     Dates: start: 20101214, end: 20101221
  2. LEVAQUIN [Suspect]
     Active Substance: LEVOFLOXACIN
     Indication: COUGH
     Route: 048
     Dates: start: 20090122, end: 20090202
  3. LEVAQUIN [Suspect]
     Active Substance: LEVOFLOXACIN
     Indication: PNEUMONIA
     Route: 048
     Dates: start: 20101214, end: 20101221
  4. LEVAQUIN [Suspect]
     Active Substance: LEVOFLOXACIN
     Indication: PNEUMONIA
     Route: 048
     Dates: start: 20101230, end: 20110106
  5. LEVAQUIN [Suspect]
     Active Substance: LEVOFLOXACIN
     Indication: PNEUMONIA
     Route: 042
  6. LEVAQUIN [Suspect]
     Active Substance: LEVOFLOXACIN
     Indication: EXCESSIVE CERUMEN PRODUCTION
     Route: 048
     Dates: start: 20101230, end: 20110106
  7. LEVAQUIN [Suspect]
     Active Substance: LEVOFLOXACIN
     Indication: ASTHMA
     Route: 048
     Dates: start: 20101230, end: 20110106
  8. LEVAQUIN [Suspect]
     Active Substance: LEVOFLOXACIN
     Indication: ASTHMA
     Route: 048
     Dates: start: 20090122, end: 20090202
  9. PREDNISONE. [Suspect]
     Active Substance: PREDNISONE
     Indication: PRODUCT USED FOR UNKNOWN INDICATION
     Route: 065
     Dates: start: 2010, end: 2011
  10. LEVAQUIN [Suspect]
     Active Substance: LEVOFLOXACIN
     Indication: EXCESSIVE CERUMEN PRODUCTION
     Route: 048
     Dates: start: 20110106, end: 20110113
  11. LEVAQUIN [Suspect]
     Active Substance: LEVOFLOXACIN
     Indication: EXCESSIVE CERUMEN PRODUCTION
     Route: 048
     Dates: start: 20101027, end: 20101103
  12. LEVAQUIN [Suspect]
     Active Substance: LEVOFLOXACIN
     Indication: ASTHMA
     Route: 048
     Dates: start: 20110106, end: 20110113
  13. LEVAQUIN [Suspect]
     Active Substance: LEVOFLOXACIN
     Indication: COUGH
     Route: 048
     Dates: start: 20101230, end: 20110106
  14. LEVAQUIN [Suspect]
     Active Substance: LEVOFLOXACIN
     Indication: PNEUMONIA
     Route: 048
     Dates: start: 20090122, end: 20090202
  15. PREDNISONE. [Suspect]
     Active Substance: PREDNISONE
     Indication: PRODUCT USED FOR UNKNOWN INDICATION
     Route: 065
     Dates: start: 2015
  16. LEVAQUIN [Suspect]
     Active Substance: LEVOFLOXACIN
     Indication: EXCESSIVE CERUMEN PRODUCTION
     Route: 048
     Dates: start: 20101214, end: 20101221
  17. LEVAQUIN [Suspect]
     Active Substance: LEVOFLOXACIN
     Indication: EXCESSIVE CERUMEN PRODUCTION
     Route: 048
     Dates: start: 20090122, end: 20090202
  18. LEVAQUIN [Suspect]
     Active Substance: LEVOFLOXACIN
     Indication: COUGH
     Route: 048
     Dates: start: 20110106, end: 20110113
  19. OXYCODONE [Concomitant]
     Active Substance: OXYCODONE
     Indication: PAIN
     Route: 065
     Dates: start: 2010
  20. LEVAQUIN [Suspect]
     Active Substance: LEVOFLOXACIN
     Indication: ASTHMA
     Route: 048
     Dates: start: 20101027, end: 20101103
  21. LEVAQUIN [Suspect]
     Active Substance: LEVOFLOXACIN
     Indication: PNEUMONIA
     Route: 048
     Dates: start: 20101027, end: 20101103
  22. LEVAQUIN [Suspect]
     Active Substance: LEVOFLOXACIN
     Indication: PNEUMONIA
     Route: 048
     Dates: start: 20110106, end: 20110113
  23. HYDROCODONE [Concomitant]
     Active Substance: HYDROCODONE
     Indication: NEUROPATHY PERIPHERAL
     Route: 065
     Dates: start: 2010
  24. LEVAQUIN [Suspect]
     Active Substance: LEVOFLOXACIN
     Indication: COUGH
     Route: 048
     Dates: start: 20101027, end: 20101103
  25. LEVAQUIN [Suspect]
     Active Substance: LEVOFLOXACIN
     Indication: COUGH
     Route: 048
     Dates: start: 20101214, end: 20101221

REACTIONS (3)
  - Anxiety [Not Recovered/Not Resolved]
  - Depression [Not Recovered/Not Resolved]
  - Neuropathy peripheral [Not Recovered/Not Resolved]

NARRATIVE: CASE EVENT DATE: 201101
